FAERS Safety Report 6609918-2 (Version None)
Quarter: 2010Q1

REPORT INFORMATION
  Report Type: 
  Country: None (occurrence: None)
  Receive Date: 20100224
  Receipt Date: 20100209
  Transmission Date: 20100710
  Serious: Yes (Death, Hospitalization)
  Sender: FDA-Public Use
  Company Number: AUR-APL-2010-00411

PATIENT
  Age: 43 Year
  Sex: Male

DRUGS (18)
  1. DIDANOSINE [Suspect]
     Indication: HIV INFECTION
     Dosage: 400MG, DAILY
     Dates: start: 19990101, end: 20010101
  2. LAMIVUDINE AND ZIDOVUDINE [Suspect]
     Indication: HIV INFECTION
     Dosage: 150/250MG, BID
     Dates: start: 19980101, end: 19990101
  3. STAVUDINE [Suspect]
     Indication: HIV INFECTION
     Dosage: 40MG - BID
     Dates: start: 19990101, end: 20010101
  4. EFAVIRENZ [Suspect]
     Indication: HIV INFECTION
     Dosage: 600MG - DAILY
     Dates: start: 19990101, end: 20010101
  5. EFAVIRENZ [Suspect]
     Indication: HIV INFECTION
     Dosage: 600MG - DAILY
     Dates: start: 20060901, end: 20070201
  6. TENOFOVIR [Suspect]
     Indication: HIV INFECTION
     Dosage: 300MG - DAILY ; 300MG - DAILY
     Dates: start: 20060901, end: 20070201
  7. TENOFOVIR [Suspect]
     Indication: HIV INFECTION
     Dosage: 300MG - DAILY ; 300MG - DAILY
     Dates: start: 20070401
  8. LAMIVUDINE [Suspect]
     Indication: HIV INFECTION
     Dosage: 300MG - DAILY
     Dates: start: 20060901, end: 20070201
  9. EMTRICITABINE [Suspect]
     Indication: HIV INFECTION
     Dosage: 200 MG - DAILY
     Dates: start: 20070401
  10. FOSAMPRENAVIR [Suspect]
     Indication: HIV INFECTION
     Dosage: 700 MG - BID
     Dates: start: 20070401
  11. RITONAVIR [Suspect]
     Indication: HIV INFECTION
     Dosage: 100 MG - BID
     Dates: start: 20070401
  12. DISULFIRAM [Suspect]
     Indication: ALCOHOL ABUSE
     Dosage: 200 MG - DAILY
     Dates: start: 20070501
  13. AMITRIPTYLINE HCL [Suspect]
     Dosage: 25 MG - DAILY
     Dates: start: 20070501
  14. NIFEDIPINE [Suspect]
     Indication: BLOOD PRESSURE
     Dosage: 30 MG - BID
     Dates: start: 20071001
  15. GABAPENTIN [Concomitant]
  16. THIAMINE/RIBOFLAVIN/PYRIDOXINE [Concomitant]
  17. MAGNESIUM [Concomitant]
  18. LORAZEPAM [Concomitant]

REACTIONS (19)
  - ABDOMINAL DISTENSION [None]
  - ABDOMINAL PAIN [None]
  - ALCOHOL ABUSE [None]
  - CHOLELITHIASIS [None]
  - CHRONIC HEPATITIS [None]
  - CONFUSIONAL STATE [None]
  - CONVULSION [None]
  - GASTRITIS [None]
  - HEPATIC CIRRHOSIS [None]
  - HEPATITIS ALCOHOLIC [None]
  - HEPATOMEGALY [None]
  - HYPERTENSION [None]
  - LACTIC ACIDOSIS [None]
  - LOSS OF CONSCIOUSNESS [None]
  - MALAISE [None]
  - MULTI-ORGAN FAILURE [None]
  - NEUROPATHY PERIPHERAL [None]
  - OESOPHAGEAL CANDIDIASIS [None]
  - SOMNOLENCE [None]
